FAERS Safety Report 24572751 (Version 3)
Quarter: 2024Q4

REPORT INFORMATION
  Report Type: Spontaneous
  Country: FR (occurrence: FR)
  Receive Date: 20241101
  Receipt Date: 20241107
  Transmission Date: 20250114
  Serious: No
  Sender: UCB
  Company Number: FR-UCBSA-2024054987

PATIENT
  Sex: Male

DRUGS (2)
  1. NEUPRO [Suspect]
     Active Substance: ROTIGOTINE
     Indication: Impatience
     Dosage: 4 MILLIGRAM, ONCE DAILY (QD)
     Route: 062
     Dates: start: 2016, end: 2018
  2. NEUPRO [Suspect]
     Active Substance: ROTIGOTINE
     Indication: Off label use

REACTIONS (9)
  - Nausea [Recovered/Resolved]
  - Hyperhidrosis [Recovered/Resolved]
  - Pain [Recovered/Resolved]
  - Tremor [Recovered/Resolved]
  - Insomnia [Recovered/Resolved]
  - Incorrect dose administered [Unknown]
  - Intentional product misuse [Unknown]
  - Off label use [Unknown]
  - Product adhesion issue [Unknown]

NARRATIVE: CASE EVENT DATE: 20240101
